FAERS Safety Report 14730181 (Version 1)
Quarter: 2018Q2

REPORT INFORMATION
  Report Type: Spontaneous
  Country: US (occurrence: US)
  Receive Date: 20180402
  Receipt Date: 20180402
  Transmission Date: 20180711
  Serious: No
  Sender: FDA-Public Use
  Company Number: None

PATIENT
  Age: 64 Year
  Sex: Female

DRUGS (1)
  1. IBRANCE [Suspect]
     Active Substance: PALBOCICLIB
     Dosage: QD X 21 DAYS
     Route: 048

REACTIONS (3)
  - Feeling abnormal [None]
  - Alopecia [None]
  - Liver disorder [None]

NARRATIVE: CASE EVENT DATE: 20180402
